FAERS Safety Report 22325259 (Version 2)
Quarter: 2023Q2

REPORT INFORMATION
  Report Type: Other
  Country: US (occurrence: None)
  Receive Date: 20230516
  Receipt Date: 20230613
  Transmission Date: 20230722
  Serious: Yes (Other)
  Sender: FDA-Public Use
  Company Number: US-ROCHE-3280184

PATIENT
  Age: 74 Year
  Sex: Female

DRUGS (4)
  1. ZELBORAF [Suspect]
     Active Substance: VEMURAFENIB
     Indication: Breast cancer female
     Dosage: TAKE 3 TABLET(S) BY MOUTH TWICE A DAY WITH A GLASS OF WATER ON DAYS 1-28.
     Route: 048
  2. ZELBORAF [Suspect]
     Active Substance: VEMURAFENIB
     Indication: Lung neoplasm malignant
  3. COTELLIC [Suspect]
     Active Substance: COBIMETINIB
     Indication: Breast cancer female
     Dosage: TAKE 3 TABLET(S) BY MOUTH ONCE DAILY ON DAYS 1-21 OF A 28 DAY CYCLE
     Route: 048
  4. COTELLIC [Suspect]
     Active Substance: COBIMETINIB
     Indication: Lung neoplasm malignant

REACTIONS (4)
  - Large intestinal obstruction [Unknown]
  - Cataract [Unknown]
  - Off label use [Unknown]
  - Product prescribing error [Unknown]
